FAERS Safety Report 11737927 (Version 1)
Quarter: 2015Q4

REPORT INFORMATION
  Report Type: Spontaneous
  Country: US (occurrence: None)
  Receive Date: 20151112
  Receipt Date: 20151112
  Transmission Date: 20160304
  Serious: Yes (Disabling)
  Sender: FDA-Public Use
  Company Number: None

PATIENT
  Age: 46 Year
  Sex: Female
  Weight: 240 kg

DRUGS (2)
  1. OTEZLA [Suspect]
     Active Substance: APREMILAST
     Indication: ARTHRITIS
  2. NEURONTIN [Suspect]
     Active Substance: GABAPENTIN
     Indication: PSORIASIS

REACTIONS (2)
  - Abnormal behaviour [None]
  - Paranoia [None]

NARRATIVE: CASE EVENT DATE: 20151110
